FAERS Safety Report 16381273 (Version 2)
Quarter: 2019Q2

REPORT INFORMATION
  Report Type: Spontaneous
  Country: FI (occurrence: FI)
  Receive Date: 20190603
  Receipt Date: 20190621
  Transmission Date: 20190711
  Serious: Yes (Other)
  Sender: FDA-Public Use
  Company Number: FI-SUN PHARMACEUTICAL INDUSTRIES LTD-2019RR-207002

PATIENT
  Age: 71 Year
  Sex: Female

DRUGS (3)
  1. ATORVASTATIN ORION [Suspect]
     Active Substance: ATORVASTATIN CALCIUM
     Indication: BLOOD CHOLESTEROL INCREASED
     Dosage: 10 MILLIGRAM, DAILY, (IN THE EVENING (10 MG,1 IN 24 HR)
     Route: 065
  2. THYROXIN [Concomitant]
     Active Substance: LEVOTHYROXINE
     Indication: HYPOTHYROIDISM
     Dosage: 100 MICROGRAM, (TABLET EVERY DAY BUT ON FRIDAYS AND TUESDAYS 1/2)
     Route: 065
     Dates: start: 200702
  3. ZOPINOX [Concomitant]
     Active Substance: ZOPICLONE
     Indication: INSOMNIA
     Dosage: 7.5 MILLIGRAM, (TAKES 1/3-1/2 OF A TABLET)
     Route: 065

REACTIONS (6)
  - Pharyngitis streptococcal [Recovered/Resolved]
  - Blood glucose increased [Recovering/Resolving]
  - Throat irritation [Recovering/Resolving]
  - Oropharyngeal discomfort [Recovering/Resolving]
  - Pharyngitis [Recovered/Resolved]
  - Nasopharyngitis [Unknown]

NARRATIVE: CASE EVENT DATE: 2016
